APPROVED DRUG PRODUCT: FLUOCINONIDE
Active Ingredient: FLUOCINONIDE
Strength: 0.05%
Dosage Form/Route: SOLUTION;TOPICAL
Application: A207554 | Product #001
Applicant: SCIEGEN PHARMACEUTICALS INC
Approved: Mar 18, 2019 | RLD: No | RS: No | Type: DISCN